FAERS Safety Report 26116793 (Version 1)
Quarter: 2025Q4

REPORT INFORMATION
  Report Type: Report from Study
  Country: EU (occurrence: EU)
  Receive Date: 20251203
  Receipt Date: 20251203
  Transmission Date: 20260117
  Serious: Yes (Hospitalization)
  Sender: CHEPLAPHARM
  Company Number: EU-CHEPLA-2025013621

PATIENT
  Age: 38 Year
  Sex: Male

DRUGS (4)
  1. OLANZAPINE [Suspect]
     Active Substance: OLANZAPINE
     Indication: Schizophrenia
     Dosage: 10 MG TWICE DAILY?DAILY DOSE: 20 MILLIGRAM
  2. OLANZAPINE [Suspect]
     Active Substance: OLANZAPINE
     Indication: Schizophrenia
     Dosage: 10 MG ONCE DAILY?DAILY DOSE: 10 MILLIGRAM
  3. OLANZAPINE [Suspect]
     Active Substance: OLANZAPINE
     Indication: Schizophrenia
     Dosage: SUBSEQUENT TITRATION TO 20 MG ONCE DAILY?DAILY DOSE: 20 MILLIGRAM
  4. AMOXICILLIN\CLAVULANIC ACID [Suspect]
     Active Substance: AMOXICILLIN\CLAVULANIC ACID
     Dosage: AT A DOSE OF 1 G EVERY EIGHT HOURS ORALLY?DAILY DOSE: 3 GRAM
     Route: 048

REACTIONS (5)
  - Upper respiratory tract infection [Recovered/Resolved]
  - C-reactive protein increased [Recovered/Resolved]
  - Sedation [Recovered/Resolved]
  - Full blood count abnormal [Recovered/Resolved]
  - Antipsychotic drug level above therapeutic [Recovered/Resolved]
